FAERS Safety Report 4659138-6 (Version None)
Quarter: 2005Q2

REPORT INFORMATION
  Report Type: 
  Country: None (occurrence: None)
  Receive Date: 20050511
  Receipt Date: 20050427
  Transmission Date: 20051028
  Serious: Yes (Hospitalization)
  Sender: FDA-Public Use
  Company Number: DE-JNJFOC-20050502204

PATIENT
  Sex: Male
  Weight: 90 kg

DRUGS (2)
  1. IBUPROFEN [Suspect]
     Route: 049
  2. ZITHROMAX [Suspect]
     Indication: FEBRILE INFECTION
     Route: 049

REACTIONS (7)
  - AMNESIA [None]
  - ARTHRALGIA [None]
  - CONFUSIONAL STATE [None]
  - HEMIPARESIS [None]
  - HYPOAESTHESIA [None]
  - PAIN IN EXTREMITY [None]
  - PARAESTHESIA [None]
